FAERS Safety Report 8058364-6 (Version None)
Quarter: 2012Q1

REPORT INFORMATION
  Report Type: 
  Country: None (occurrence: None)
  Receive Date: 20120120
  Receipt Date: 20120110
  Transmission Date: 20120608
  Serious: Yes (Hospitalization)
  Sender: FDA-Public Use
  Company Number: US-BAYER-2011-075321

PATIENT
  Age: 32 Year
  Sex: Female
  Weight: 113.38 kg

DRUGS (2)
  1. POTASSIUM CHLORIDE [Concomitant]
     Dosage: UNK
     Dates: start: 20080601
  2. YAZ [Suspect]
     Indication: CONTRACEPTION
     Dosage: UNK
     Route: 048
     Dates: start: 20080601, end: 20100601

REACTIONS (3)
  - PAIN [None]
  - GALLBLADDER INJURY [None]
  - INJURY [None]
